FAERS Safety Report 22622554 (Version 2)
Quarter: 2023Q2

REPORT INFORMATION
  Report Type: Spontaneous
  Country: US (occurrence: US)
  Receive Date: 20230621
  Receipt Date: 20230621
  Transmission Date: 20230722
  Serious: No
  Sender: FDA-Public Use
  Company Number: US-ASTELLAS-2022US034463

PATIENT
  Age: 82 Year
  Sex: Male

DRUGS (5)
  1. VESICARE [Suspect]
     Active Substance: SOLIFENACIN SUCCINATE
     Indication: Neurogenic bladder
     Route: 065
  2. VESICARE [Suspect]
     Active Substance: SOLIFENACIN SUCCINATE
     Route: 065
  3. VESICARE [Suspect]
     Active Substance: SOLIFENACIN SUCCINATE
     Indication: Neurogenic bladder
     Dosage: 5 MG, ONCE DAILY (ON SOLIFENACIN 5 MG FOR A COUPLE WEEKS)
     Route: 065
  4. METHOTREXATE [Concomitant]
     Active Substance: METHOTREXATE
     Indication: Autoimmune disorder
     Dosage: UNK UNK, UNKNOWN FREQ.
     Route: 065
  5. METOPROLOL [Concomitant]
     Active Substance: METOPROLOL
     Indication: Product used for unknown indication
     Dosage: UNK UNK, UNKNOWN FREQ.
     Route: 065

REACTIONS (5)
  - Drug intolerance [Unknown]
  - Gastrointestinal hypomotility [Recovering/Resolving]
  - Confusional state [Unknown]
  - Constipation [Unknown]
  - Off label use [Unknown]
